FAERS Safety Report 7440851-2 (Version None)
Quarter: 2011Q2

REPORT INFORMATION
  Report Type: 
  Country: None (occurrence: None)
  Receive Date: 20110427
  Receipt Date: 20091110
  Transmission Date: 20111010
  Serious: Yes (Other)
  Sender: FDA-Public Use
  Company Number: US-BAYER-200816586NA

PATIENT
  Age: 59 Year
  Sex: Male
  Weight: 97 kg

DRUGS (7)
  1. TRASYLOL [Suspect]
     Indication: HEART VALVE OPERATION
     Dosage: LOADING DOSE 200 ML BOLUS THEN 25 ML/HOUR
     Dates: start: 20050603, end: 20050603
  2. ZESTORETIC [Concomitant]
     Dosage: 10/12.5 MG
     Route: 048
  3. ACETYLSALICYLIC ACID SRT [Concomitant]
     Dosage: 81 MG, UNK
     Route: 048
  4. HEPARIN [Concomitant]
     Dosage: UNK
     Route: 042
     Dates: start: 20050603, end: 20050603
  5. NITROGLYCERIN [Concomitant]
     Dosage: 110 MEQ, UNK
     Route: 042
     Dates: start: 20050603, end: 20050603
  6. LIPITOR [Concomitant]
     Dosage: 40 MG, UNK
     Route: 048
  7. NORVASC [Concomitant]
     Dosage: 5 MG, UNK
     Route: 048

REACTIONS (9)
  - RENAL FAILURE [None]
  - PAIN [None]
  - RENAL INJURY [None]
  - EMOTIONAL DISTRESS [None]
  - PULMONARY OEDEMA [None]
  - RENAL IMPAIRMENT [None]
  - STRESS [None]
  - ANXIETY [None]
  - FEAR [None]
